FAERS Safety Report 21867170 (Version 5)
Quarter: 2023Q2

REPORT INFORMATION
  Report Type: Report from Study
  Country: CA (occurrence: CA)
  Receive Date: 20230116
  Receipt Date: 20230424
  Transmission Date: 20230722
  Serious: Yes (Hospitalization)
  Sender: FDA-Public Use
  Company Number: CA-MYLANLABS-2022M1122636

PATIENT
  Age: 9 Year
  Sex: Female

DRUGS (1)
  1. HULIO [Suspect]
     Active Substance: ADALIMUMAB-FKJP
     Indication: Juvenile idiopathic arthritis
     Dosage: 40 MILLIGRAM/2 WEEKS, BIWEEKLY
     Route: 058
     Dates: start: 20220704

REACTIONS (4)
  - Infection [Unknown]
  - Infectious mononucleosis [Unknown]
  - Streptococcal infection [Unknown]
  - Otitis media [Unknown]

NARRATIVE: CASE EVENT DATE: 20230111
